FAERS Safety Report 16911272 (Version 1)
Quarter: 2019Q4

REPORT INFORMATION
  Report Type: Spontaneous
  Country: US (occurrence: US)
  Receive Date: 20190821
  Receipt Date: 20190821
  Transmission Date: 20200122
  Serious: No
  Sender: FDA-Public Use
  Company Number: None

PATIENT
  Sex: Male

DRUGS (2)
  1. BIKTARVY [Suspect]
     Active Substance: BICTEGRAVIR SODIUM\EMTRICITABINE\TENOFOVIR ALAFENAMIDE FUMARATE
     Indication: HIV INFECTION
     Route: 048
     Dates: start: 20190111
  2. ESCITALOPRAM 20MG ACCORD HEALTHCARE [Suspect]
     Active Substance: ESCITALOPRAM OXALATE
     Indication: HIV INFECTION
     Route: 048
     Dates: start: 20190426

REACTIONS (4)
  - Depression [None]
  - Asthenia [None]
  - Weight increased [None]
  - Irritability [None]
